FAERS Safety Report 5562240-8 (Version None)
Quarter: 2007Q4

REPORT INFORMATION
  Report Type: 
  Country: None (occurrence: None)
  Receive Date: 20071215
  Receipt Date: 20070924
  Transmission Date: 20080405
  Serious: No
  Sender: FDA-Public Use
  Company Number: US-AMGEN-KDL244838

PATIENT
  Sex: Female

DRUGS (3)
  1. ENBREL [Suspect]
     Indication: RHEUMATOID ARTHRITIS
     Route: 058
     Dates: start: 20070920
  2. PLAQUENIL [Concomitant]
     Route: 048
     Dates: start: 20000101
  3. ARAVA [Concomitant]
     Route: 048
     Dates: start: 20000101

REACTIONS (4)
  - COLD SWEAT [None]
  - NAUSEA [None]
  - PALLOR [None]
  - PARAESTHESIA [None]
